FAERS Safety Report 9040402 (Version 1)
Quarter: 2013Q1

REPORT INFORMATION
  Report Type: Report from Study
  Country: US (occurrence: US)
  Receive Date: 20130129
  Receipt Date: 20130129
  Transmission Date: 20140127
  Serious: No
  Sender: FDA-Public Use
  Company Number: US-ABBOTT-12P-163-0898436-00

PATIENT
  Age: 35 Year
  Sex: Female

DRUGS (21)
  1. HUMIRA 40 MG/0.8 ML PEN [Suspect]
     Indication: CROHN^S DISEASE
     Dates: start: 201111
  2. PENTASA [Concomitant]
     Indication: CROHN^S DISEASE
     Dosage: FOUR 500MG TWICE A DAY
  3. EFFEXOR XR [Concomitant]
     Indication: DEPRESSION
     Dosage: TWO 75MG CAPSULES TWICE A DAY
  4. LASIX [Concomitant]
     Indication: FLUID RETENTION
  5. KADIAN [Concomitant]
     Indication: PAIN
  6. PHENERGAN [Concomitant]
     Indication: NAUSEA
     Dosage: EVERY 4-6 HOURS AS NEEDED
  7. ELAVIL [Concomitant]
     Indication: INSOMNIA
     Dosage: TWO 100MG AT BEDTIME
  8. ESTRATEST [Concomitant]
     Indication: HOT FLUSH
     Dosage: AT BEDTIME
  9. CARAFATE [Concomitant]
     Indication: PRODUCT USED FOR UNKNOWN INDICATION
     Dosage: 2 TEASPOONS BEFORE EVERY MEAL+BEDTIME
  10. BENTYL [Concomitant]
     Indication: CROHN^S DISEASE
  11. FLEXERIL [Concomitant]
     Indication: BACK PAIN
     Dosage: 10MG THREE TIMES A DAY AS NEEDED
  12. FLEXERIL [Concomitant]
     Indication: MUSCLE SPASMS
  13. ZYRTEC [Concomitant]
     Indication: HYPERSENSITIVITY
  14. ALBUTEROL [Concomitant]
     Indication: WHEEZING
     Dosage: 2 PUFFS EVERY 4-6 HOURS AS NEEDED
  15. MISOPROSTOL [Concomitant]
     Indication: CROHN^S DISEASE
  16. KRISTALOSE [Concomitant]
     Indication: CROHN^S DISEASE
  17. VITAMIN B12 [Concomitant]
     Indication: HYPOVITAMINOSIS
  18. POTASSIUM [Concomitant]
     Indication: ELECTROLYTE SUBSTITUTION THERAPY
  19. IRON [Concomitant]
     Indication: ANAEMIA
  20. ENTOCORT EC [Concomitant]
     Indication: PRODUCT USED FOR UNKNOWN INDICATION
     Dosage: 3 TABLETS EVERY DAY
  21. ENTOCORT EC [Concomitant]

REACTIONS (3)
  - Headache [Not Recovered/Not Resolved]
  - Gastric infection [Unknown]
  - Bronchitis [Unknown]
